FAERS Safety Report 9833205 (Version 1)
Quarter: 2014Q1

REPORT INFORMATION
  Report Type: Spontaneous
  Country: US (occurrence: US)
  Receive Date: 20140121
  Receipt Date: 20140121
  Transmission Date: 20141002
  Serious: No
  Sender: FDA-Public Use
  Company Number: US-BAUSCH-BL-2013-001266

PATIENT
  Age: 80 Year
  Sex: Female
  Weight: 65.83 kg

DRUGS (8)
  1. ALAWAY [Suspect]
     Indication: EYE ALLERGY
     Dosage: 1 DROP IN EACH EYE; ONCE; OPHTHALMIC
     Route: 047
     Dates: start: 20130219
  2. ALAWAY (KETOTIFEN FUMARATE OPHTHALMIC SOLUTION) [Suspect]
     Indication: EYE IRRITATION
  3. LEVOTHYROXINE SODIUM [Concomitant]
     Indication: HYPOTHYROIDISM
  4. PANTOPRAZOLE SODIUM SESQUIHYDRATE [Concomitant]
     Indication: GASTROOESOPHAGEAL REFLUX DISEASE
  5. PSEUDOEPHEDRINE HYDROCHLORIDE/FEXOFENADINE HYDROCHLORIDE [Concomitant]
     Indication: HYPERSENSITIVITY
  6. BIFIDOBACTERIUM LACTIS [Concomitant]
  7. TRAZODONE [Concomitant]
  8. PARACETAMOL/OXYCODONE HYDROCHLORIDE/OXYCODONE TEREPHTHALATE [Concomitant]

REACTIONS (2)
  - Nasal congestion [Unknown]
  - Condition aggravated [Unknown]
